FAERS Safety Report 6736865-8 (Version None)
Quarter: 2010Q2

REPORT INFORMATION
  Report Type: 
  Country: None (occurrence: None)
  Receive Date: 20100520
  Receipt Date: 20100520
  Transmission Date: 20101027
  Serious: Yes (Hospitalization)
  Sender: FDA-Public Use
  Company Number: None

PATIENT
  Sex: Male
  Weight: 76.6 kg

DRUGS (2)
  1. CISPLATIN [Suspect]
     Dosage: 194 MG
     Dates: end: 20100330
  2. TAXOL [Suspect]
     Dosage: 386 MG
     Dates: end: 20100330

REACTIONS (8)
  - DEHYDRATION [None]
  - DIZZINESS [None]
  - FATIGUE [None]
  - HEART RATE INCREASED [None]
  - HYPOPHAGIA [None]
  - NAUSEA [None]
  - REFUSAL OF TREATMENT BY PATIENT [None]
  - WEIGHT DECREASED [None]
